FAERS Safety Report 9511899 (Version 1)
Quarter: 2013Q3

REPORT INFORMATION
  Report Type: Spontaneous
  Country: KR (occurrence: KR)
  Receive Date: 20130910
  Receipt Date: 20130910
  Transmission Date: 20140515
  Serious: Yes (Hospitalization)
  Sender: FDA-Public Use
  Company Number: KR-PERRIGO-13KR009103

PATIENT
  Age: 76 Year
  Sex: Female

DRUGS (2)
  1. MESALAMINE RX 66.667 MG/ML 2N9 [Suspect]
     Indication: COLITIS ULCERATIVE
     Dosage: UNKNOWN
     Route: 054
  2. HYDROCORTISONE [Concomitant]
     Indication: COLITIS ULCERATIVE
     Route: 042

REACTIONS (3)
  - Rectal perforation [Recovered/Resolved]
  - Pneumoretroperitoneum [Recovered/Resolved]
  - Abdominal discomfort [Recovered/Resolved]
